FAERS Safety Report 9355813 (Version 3)
Quarter: 2013Q3

REPORT INFORMATION
  Report Type: Spontaneous
  Country: JP (occurrence: JP)
  Receive Date: 20130619
  Receipt Date: 20130814
  Transmission Date: 20140515
  Serious: Yes (Hospitalization)
  Sender: FDA-Public Use
  Company Number: JP-JNJFOC-20130610074

PATIENT
  Sex: Male

DRUGS (2)
  1. TRAMACET [Suspect]
     Indication: POST HERPETIC NEURALGIA
     Route: 048
  2. TRAMACET [Suspect]
     Indication: POST HERPETIC NEURALGIA
     Dosage: 1 PER 1 DAY
     Route: 048

REACTIONS (1)
  - Pulmonary tuberculosis [Recovering/Resolving]
